FAERS Safety Report 17251489 (Version 1)
Quarter: 2019Q4

REPORT INFORMATION
  Report Type: Spontaneous
  Country: US (occurrence: US)
  Receive Date: 20191216
  Receipt Date: 20191216
  Transmission Date: 20200122
  Serious: No
  Sender: FDA-Public Use
  Company Number: None

PATIENT
  Age: 19 Year
  Sex: Male

DRUGS (1)
  1. TACROLIMUS 0.5 MG CAP [Suspect]
     Active Substance: TACROLIMUS
     Dosage: ?          OTHER FREQUENCY:1 CAP 2X DAILY;?
     Route: 048
     Dates: start: 20190322

REACTIONS (1)
  - Haemothorax [None]

NARRATIVE: CASE EVENT DATE: 201911
